FAERS Safety Report 8158147-2 (Version None)
Quarter: 2012Q1

REPORT INFORMATION
  Report Type: 
  Country: None (occurrence: None)
  Receive Date: 20120222
  Receipt Date: 20120213
  Transmission Date: 20120608
  Serious: Yes (Other)
  Sender: FDA-Public Use
  Company Number: PHHY2009JP53414

PATIENT
  Sex: Female
  Weight: 30 kg

DRUGS (9)
  1. LOCHOLEST [Concomitant]
     Indication: HYPERLIPIDAEMIA
     Dosage: 10 MG, UNK
     Route: 048
     Dates: start: 20091124
  2. NEORAL [Suspect]
     Dosage: 100 MG IN TWO DIVIDED DOSES DAILY
     Route: 048
  3. NEORAL [Suspect]
     Indication: NEPHROTIC SYNDROME
     Dosage: 0.3 ML, BID
     Route: 048
     Dates: start: 20091120, end: 20091124
  4. SOLU-MEDROL [Concomitant]
     Indication: NEPHROTIC SYNDROME
     Dosage: 375 MG, UNK
     Route: 042
     Dates: start: 20091125, end: 20091127
  5. LASIX [Concomitant]
     Indication: OEDEMA
     Route: 048
     Dates: start: 20091118, end: 20091211
  6. FAMOTIDINE [Concomitant]
     Indication: ULCER
     Dosage: 8 MG, UNK
     Route: 048
     Dates: start: 20091118
  7. NEORAL [Suspect]
     Dosage: 0.6 ML, BID
     Route: 048
     Dates: start: 20091125, end: 20091128
  8. NEORAL [Suspect]
     Dosage: 0.2 ML, BID
     Route: 048
     Dates: start: 20091212
  9. METHYLPREDNISOLONE [Suspect]
     Indication: NEPHROTIC SYNDROME
     Dosage: 375 MG, PER DAY
     Route: 042
     Dates: start: 20091125, end: 20091127

REACTIONS (9)
  - POSTERIOR REVERSIBLE ENCEPHALOPATHY SYNDROME [None]
  - VOMITING [None]
  - EYE MOVEMENT DISORDER [None]
  - DRUG INTERACTION [None]
  - ALTERED STATE OF CONSCIOUSNESS [None]
  - BLOOD PRESSURE INCREASED [None]
  - IMMUNOSUPPRESSANT DRUG LEVEL INCREASED [None]
  - CLONIC CONVULSION [None]
  - BLOOD ALKALINE PHOSPHATASE INCREASED [None]
